FAERS Safety Report 11988639 (Version 1)
Quarter: 2016Q1

REPORT INFORMATION
  Report Type: Spontaneous
  Country: TR (occurrence: TR)
  Receive Date: 20160202
  Receipt Date: 20160202
  Transmission Date: 20160526
  Serious: Yes (Death)
  Sender: FDA-Public Use
  Company Number: TR-SA-2016SA017384

PATIENT
  Age: 75 Year
  Sex: Female
  Weight: 75 kg

DRUGS (4)
  1. CLEXANE [Suspect]
     Active Substance: ENOXAPARIN SODIUM
     Indication: VENOUS THROMBOSIS
     Route: 058
     Dates: start: 20160118, end: 20160125
  2. NIMESULIDE [Concomitant]
     Active Substance: NIMESULIDE
     Route: 048
     Dates: start: 20160118, end: 20160125
  3. PANTOPRAZOLE SODIUM. [Concomitant]
     Active Substance: PANTOPRAZOLE SODIUM
     Route: 048
     Dates: start: 20160118, end: 20160125
  4. SYMRA [Concomitant]
     Route: 048
     Dates: start: 20160118, end: 20160125

REACTIONS (4)
  - Hypovolaemic shock [Fatal]
  - Respiratory tract infection viral [Fatal]
  - Abdominal wall haematoma [Fatal]
  - Gastrointestinal haemorrhage [Fatal]

NARRATIVE: CASE EVENT DATE: 20160124
